FAERS Safety Report 16267014 (Version 2)
Quarter: 2019Q2

REPORT INFORMATION
  Report Type: Spontaneous
  Country: US (occurrence: US)
  Receive Date: 20190502
  Receipt Date: 20190520
  Transmission Date: 20190711
  Serious: Yes (Other)
  Sender: FDA-Public Use
  Company Number: US-009507513-1904USA012884

PATIENT
  Age: 34 Year
  Sex: Female
  Weight: 112.47 kg

DRUGS (2)
  1. NEXPLANON [Suspect]
     Active Substance: ETONOGESTREL
     Dosage: UNK
     Route: 059
     Dates: start: 20190513
  2. NEXPLANON [Suspect]
     Active Substance: ETONOGESTREL
     Indication: CONTRACEPTION
     Dosage: LEFT ARM, ONCE EVERY 3 YEARS
     Route: 059
     Dates: start: 20190418, end: 20190423

REACTIONS (1)
  - Infection [Recovered/Resolved with Sequelae]

NARRATIVE: CASE EVENT DATE: 20190421
